FAERS Safety Report 25851531 (Version 1)
Quarter: 2025Q3

REPORT INFORMATION
  Report Type: Spontaneous
  Country: EU (occurrence: EU)
  Receive Date: 20250926
  Receipt Date: 20250926
  Transmission Date: 20251020
  Serious: Yes (Life-Threatening)
  Sender: MYLAN
  Company Number: None

PATIENT
  Age: 93 Year
  Sex: Female
  Weight: 84 kg

DRUGS (28)
  1. SERTRALINE [Suspect]
     Active Substance: SERTRALINE HYDROCHLORIDE
     Indication: Anxiety disorder
     Dosage: 50 MILLIGRAM, QD (50 MG/DAY)
  2. SERTRALINE [Suspect]
     Active Substance: SERTRALINE HYDROCHLORIDE
     Dosage: 50 MILLIGRAM, QD (50 MG/DAY)
     Route: 048
  3. SERTRALINE [Suspect]
     Active Substance: SERTRALINE HYDROCHLORIDE
     Dosage: 50 MILLIGRAM, QD (50 MG/DAY)
     Route: 048
  4. SERTRALINE [Suspect]
     Active Substance: SERTRALINE HYDROCHLORIDE
     Dosage: 50 MILLIGRAM, QD (50 MG/DAY)
  5. MORPHINE SULFATE [Suspect]
     Active Substance: MORPHINE SULFATE
     Indication: Pain
     Dosage: 5 MILLIGRAM, QID (5 MG 4 TIMES/DAY) (20 MG, QD)
     Dates: start: 20250803, end: 20250803
  6. MORPHINE SULFATE [Suspect]
     Active Substance: MORPHINE SULFATE
     Dosage: 5 MILLIGRAM, QID (5 MG 4 TIMES/DAY) (20 MG, QD)
     Route: 048
     Dates: start: 20250803, end: 20250803
  7. MORPHINE SULFATE [Suspect]
     Active Substance: MORPHINE SULFATE
     Dosage: 5 MILLIGRAM, QID (5 MG 4 TIMES/DAY) (20 MG, QD)
     Route: 048
     Dates: start: 20250803, end: 20250803
  8. MORPHINE SULFATE [Suspect]
     Active Substance: MORPHINE SULFATE
     Dosage: 5 MILLIGRAM, QID (5 MG 4 TIMES/DAY) (20 MG, QD)
     Dates: start: 20250803, end: 20250803
  9. MORPHINE HYDROCHLORIDE [Suspect]
     Active Substance: MORPHINE HYDROCHLORIDE
     Indication: Pain
  10. MORPHINE HYDROCHLORIDE [Suspect]
     Active Substance: MORPHINE HYDROCHLORIDE
     Route: 058
  11. MORPHINE HYDROCHLORIDE [Suspect]
     Active Substance: MORPHINE HYDROCHLORIDE
     Route: 058
  12. MORPHINE HYDROCHLORIDE [Suspect]
     Active Substance: MORPHINE HYDROCHLORIDE
  13. OXAZEPAM [Suspect]
     Active Substance: OXAZEPAM
     Indication: Anxiety
     Dosage: 10 MILLIGRAM, QD (10 MG/DAY)
  14. OXAZEPAM [Suspect]
     Active Substance: OXAZEPAM
     Dosage: 10 MILLIGRAM, QD (10 MG/DAY)
     Route: 048
  15. OXAZEPAM [Suspect]
     Active Substance: OXAZEPAM
     Dosage: 10 MILLIGRAM, QD (10 MG/DAY)
     Route: 048
  16. OXAZEPAM [Suspect]
     Active Substance: OXAZEPAM
     Dosage: 10 MILLIGRAM, QD (10 MG/DAY)
  17. GABAPENTIN [Suspect]
     Active Substance: GABAPENTIN
     Indication: Product used for unknown indication
     Dosage: 900 MILLIGRAM, TID (900 MG/3 TIMES A DAY)
  18. GABAPENTIN [Suspect]
     Active Substance: GABAPENTIN
     Dosage: 900 MILLIGRAM, TID (900 MG/3 TIMES A DAY)
     Route: 048
  19. GABAPENTIN [Suspect]
     Active Substance: GABAPENTIN
     Dosage: 900 MILLIGRAM, TID (900 MG/3 TIMES A DAY)
     Route: 048
  20. GABAPENTIN [Suspect]
     Active Substance: GABAPENTIN
     Dosage: 900 MILLIGRAM, TID (900 MG/3 TIMES A DAY)
  21. Solupred [Concomitant]
     Indication: Product used for unknown indication
     Dosage: 20 MILLIGRAM, QD (20 MG PER DAY)
     Dates: start: 20250803
  22. Solupred [Concomitant]
     Dosage: 20 MILLIGRAM, QD (20 MG PER DAY)
     Route: 048
     Dates: start: 20250803
  23. Solupred [Concomitant]
     Dosage: 20 MILLIGRAM, QD (20 MG PER DAY)
     Route: 048
     Dates: start: 20250803
  24. Solupred [Concomitant]
     Dosage: 20 MILLIGRAM, QD (20 MG PER DAY)
     Dates: start: 20250803
  25. Propranolol arrow [Concomitant]
     Indication: Essential tremor
     Dosage: 20 MILLIGRAM, QD (20 MG PER DAY)
     Dates: start: 20250803, end: 20250803
  26. Propranolol arrow [Concomitant]
     Dosage: 20 MILLIGRAM, QD (20 MG PER DAY)
     Route: 048
     Dates: start: 20250803, end: 20250803
  27. Propranolol arrow [Concomitant]
     Dosage: 20 MILLIGRAM, QD (20 MG PER DAY)
     Route: 048
     Dates: start: 20250803, end: 20250803
  28. Propranolol arrow [Concomitant]
     Dosage: 20 MILLIGRAM, QD (20 MG PER DAY)
     Dates: start: 20250803, end: 20250803

REACTIONS (1)
  - Fall [Not Recovered/Not Resolved]

NARRATIVE: CASE EVENT DATE: 20250804
